FAERS Safety Report 16015793 (Version 1)
Quarter: 2019Q1

REPORT INFORMATION
  Report Type: Spontaneous
  Country: PL (occurrence: PL)
  Receive Date: 20190228
  Receipt Date: 20190228
  Transmission Date: 20190418
  Serious: Yes (Other)
  Sender: FDA-Public Use
  Company Number: PL-GLAXOSMITHKLINE-PL2019GSK033412

PATIENT
  Age: 6 Year
  Sex: Male

DRUGS (2)
  1. FLIXOTIDE [Suspect]
     Active Substance: FLUTICASONE PROPIONATE
     Indication: MITE ALLERGY
  2. FLIXOTIDE [Suspect]
     Active Substance: FLUTICASONE PROPIONATE
     Indication: DUST ALLERGY
     Dosage: 50 UG, UNK

REACTIONS (4)
  - Epistaxis [Recovered/Resolved]
  - Staphylococcal infection [Not Recovered/Not Resolved]
  - Tooth development disorder [Recovered/Resolved]
  - Off label use [Unknown]
